FAERS Safety Report 25606242 (Version 2)
Quarter: 2025Q3

REPORT INFORMATION
  Report Type: Spontaneous
  Country: US (occurrence: US)
  Receive Date: 20250725
  Receipt Date: 20250929
  Transmission Date: 20251020
  Serious: No
  Sender: BAUSCH AND LOMB
  Company Number: US-BAUSCHBL-2025BNL012900

PATIENT
  Age: 83 Year
  Sex: Female
  Weight: 68.03 kg

DRUGS (10)
  1. BRIMONIDINE TARTRATE [Suspect]
     Active Substance: BRIMONIDINE TARTRATE
     Indication: Product used for unknown indication
     Route: 047
     Dates: start: 20240627
  2. LATANOPROST [Suspect]
     Active Substance: LATANOPROST
     Indication: Ocular discomfort
     Route: 047
  3. LATANOPROST [Suspect]
     Active Substance: LATANOPROST
  4. TIMOLOL MALEATE [Suspect]
     Active Substance: TIMOLOL MALEATE
     Indication: Product used for unknown indication
     Route: 047
  5. DORZOLAMIDE HYDROCHLORIDE [Suspect]
     Active Substance: DORZOLAMIDE HYDROCHLORIDE
     Indication: Ocular discomfort
     Dates: start: 20250920
  6. ELIQUIS [Concomitant]
     Active Substance: APIXABAN
  7. Diltizem [Concomitant]
  8. ATORVASTATIN [Concomitant]
     Active Substance: ATORVASTATIN
  9. LEVOTHYROXINE [Concomitant]
     Active Substance: LEVOTHYROXINE
  10. FLECAINIDE [Concomitant]
     Active Substance: FLECAINIDE

REACTIONS (9)
  - Palpitations [Unknown]
  - Blood pressure abnormal [Unknown]
  - Somnolence [Unknown]
  - Fatigue [Unknown]
  - Dysphonia [Unknown]
  - Dry throat [Unknown]
  - Dizziness [Unknown]
  - Drug interaction [Unknown]
  - Dysgeusia [Unknown]

NARRATIVE: CASE EVENT DATE: 20250921
